FAERS Safety Report 10494204 (Version 1)
Quarter: 2014Q4

REPORT INFORMATION
  Report Type: Spontaneous
  Country: US (occurrence: None)
  Receive Date: 20141002
  Receipt Date: 20141002
  Transmission Date: 20150528
  Serious: No
  Sender: FDA-Public Use
  Company Number: None

PATIENT
  Age: 88 Year
  Sex: Female
  Weight: 54.43 kg

DRUGS (1)
  1. COVIDIEN MONOJECT PREFILL FLUSH [Suspect]
     Active Substance: DEVICE

REACTIONS (1)
  - Medical device complication [None]

NARRATIVE: CASE EVENT DATE: 20140802
